FAERS Safety Report 21340416 (Version 1)
Quarter: 2022Q3

REPORT INFORMATION
  Report Type: Spontaneous
  Country: US (occurrence: None)
  Receive Date: 20220915
  Receipt Date: 20220915
  Transmission Date: 20221027
  Serious: No
  Sender: FDA-Public Use
  Company Number: None

PATIENT
  Sex: Female

DRUGS (1)
  1. XELODA [Suspect]
     Active Substance: CAPECITABINE
     Dosage: OTHER QUANTITY : 1500MG/2000MG;?OTHER FREQUENCY : OTHER;?
     Route: 048

REACTIONS (3)
  - Urticaria [None]
  - Wound [None]
  - Furuncle [None]
